FAERS Safety Report 23067496 (Version 3)
Quarter: 2023Q4

REPORT INFORMATION
  Report Type: Report from Study
  Country: PL (occurrence: PL)
  Receive Date: 20231016
  Receipt Date: 20231116
  Transmission Date: 20240110
  Serious: Yes (Hospitalization)
  Sender: FDA-Public Use
  Company Number: PL-ARGENX-2023-ARGX-PL003423

PATIENT

DRUGS (32)
  1. EFGARTIGIMOD ALFA [Suspect]
     Active Substance: EFGARTIGIMOD ALFA
     Indication: Myasthenia gravis
     Dosage: 1000 MG, 1/WEEK
     Route: 058
     Dates: start: 20210811
  2. HYALURONIDASE (HUMAN RECOMBINANT) [Suspect]
     Active Substance: HYALURONIDASE (HUMAN RECOMBINANT)
     Indication: Myasthenia gravis
     Dosage: 1000 MG, 1/WEEK
     Route: 058
     Dates: start: 20210811
  3. APO TAMIS [Concomitant]
     Indication: Pollakiuria
     Dosage: 0.4 MG, DAILY
     Route: 048
     Dates: start: 20221109
  4. PIROLAM [Concomitant]
     Indication: Tinea versicolour
     Dosage: 1 APPL 1 MONTH
     Route: 061
     Dates: start: 20221101
  5. MESTINON [Concomitant]
     Active Substance: PYRIDOSTIGMINE BROMIDE
     Indication: Myasthenia gravis
     Dosage: 60 MG 7 TIMES A DAY
     Route: 048
     Dates: start: 201509
  6. PREDNISONE [Concomitant]
     Active Substance: PREDNISONE
     Indication: Myasthenia gravis
     Dosage: 25 MG, DAILY
     Route: 048
     Dates: start: 20190305
  7. KOLIPAN [Concomitant]
     Indication: Prophylaxis
     Dosage: 1 TABLET
     Route: 048
     Dates: start: 201511
  8. VITAMIN D [Concomitant]
     Active Substance: VITAMIN D NOS
     Indication: Prophylaxis
     Dosage: 1 TAB, DAILY
     Route: 048
     Dates: start: 201511
  9. CALCIUM [Concomitant]
     Active Substance: CALCIUM
     Indication: Prophylaxis
     Dosage: 1250-1 TAB, DAILY
     Route: 048
     Dates: start: 201511
  10. MAGNESIUM CARBONATE [Concomitant]
     Active Substance: MAGNESIUM CARBONATE
     Indication: Prophylaxis
     Dosage: 1 TAB, DAILY
     Route: 048
     Dates: start: 201511
  11. PERINDOPRIL [Concomitant]
     Active Substance: PERINDOPRIL
     Indication: Hypertension
     Dosage: 4 MG, DAILY
     Route: 048
     Dates: start: 20150402
  12. ATORVASTATIN CALCIUM [Concomitant]
     Active Substance: ATORVASTATIN CALCIUM
     Indication: Hyperlipidaemia
     Dosage: 20 MG, DAILY
     Route: 048
     Dates: start: 2005
  13. AZATHIOPRINE [Concomitant]
     Active Substance: AZATHIOPRINE
     Indication: Product used for unknown indication
  14. POTASSIUM CHLORIDE [Concomitant]
     Active Substance: POTASSIUM CHLORIDE
     Indication: Hypokalaemia
  15. SYLIMAROL [Concomitant]
     Indication: Supplementation therapy
  16. CAPTOPRIL [Concomitant]
     Active Substance: CAPTOPRIL
     Indication: Hypertension
  17. TAMSULOSIN HYDROCHLORIDE [Concomitant]
     Active Substance: TAMSULOSIN HYDROCHLORIDE
     Indication: Pollakiuria
  18. PANADOL [Concomitant]
     Active Substance: ACETAMINOPHEN
     Indication: COVID-19
  19. ASCORBIC ACID\RUTIN [Concomitant]
     Active Substance: ASCORBIC ACID\RUTIN
     Indication: COVID-19
  20. Triderma blanc [Concomitant]
     Indication: Product used for unknown indication
  21. VITELLA VERSI [Concomitant]
     Indication: Pityriasis
  22. OCTENIDINE\PHENOXYETHANOL [Concomitant]
     Active Substance: OCTENIDINE\PHENOXYETHANOL
     Indication: Umbilical hernia
  23. Solvetusan [Concomitant]
     Indication: Upper respiratory tract infection
  24. BUDESONIDE [Concomitant]
     Active Substance: BUDESONIDE
     Indication: Upper respiratory tract infection
  25. SYROP PRAWOSLAZOWY ZLOZONY [Concomitant]
     Indication: Upper respiratory tract infection
  26. ISLA [Concomitant]
     Indication: Upper respiratory tract infection
  27. MELOXICAM [Concomitant]
     Active Substance: MELOXICAM
     Indication: Tendon rupture
  28. KETOSPRAY FORTE [Concomitant]
     Indication: Tendon rupture
  29. ACETAMINOPHEN [Concomitant]
     Active Substance: ACETAMINOPHEN
     Indication: Product used for unknown indication
  30. CYCLO 3 FORT [Concomitant]
     Active Substance: ASCORBIC ACID\HESPERIDIN METHYLCHALCONE\RUSCUS ACULEATUS ROOT
     Indication: Tendon rupture
  31. Aescin [Concomitant]
     Indication: Tendon rupture
  32. ACETAMINOPHEN\ASCORBIC ACID [Concomitant]
     Active Substance: ACETAMINOPHEN\ASCORBIC ACID
     Indication: Nasopharyngitis

REACTIONS (1)
  - Pneumonia [Recovered/Resolved]

NARRATIVE: CASE EVENT DATE: 20231006
